FAERS Safety Report 10618359 (Version 1)
Quarter: 2014Q4

REPORT INFORMATION
  Report Type: Spontaneous
  Country: FR (occurrence: FR)
  Receive Date: 20141202
  Receipt Date: 20141202
  Transmission Date: 20150529
  Serious: Yes (Hospitalization)
  Sender: FDA-Public Use
  Company Number: FR-ASTRAZENECA-2014SE91821

PATIENT
  Age: 20837 Day
  Sex: Male

DRUGS (8)
  1. VANCOMYCINE MYLAN (NON-AZ PRODUCT) [Suspect]
     Active Substance: VANCOMYCIN
     Route: 042
     Dates: start: 20140722, end: 20140723
  2. INEXIUM [Suspect]
     Active Substance: ESOMEPRAZOLE
     Route: 048
     Dates: start: 20140815, end: 20140828
  3. VANCOMYCINE MYLAN (NON-AZ PRODUCT) [Suspect]
     Active Substance: VANCOMYCIN
     Route: 042
     Dates: start: 20140813, end: 20140817
  4. TRANXENE T-TAB [Suspect]
     Active Substance: CLORAZEPATE DIPOTASSIUM
     Route: 048
     Dates: start: 20140727, end: 20140728
  5. INEXIUM [Suspect]
     Active Substance: ESOMEPRAZOLE
     Route: 048
     Dates: start: 20140730, end: 20140813
  6. TRANXENE T-TAB [Suspect]
     Active Substance: CLORAZEPATE DIPOTASSIUM
     Route: 048
     Dates: start: 20140804, end: 20140813
  7. TARGOCID [Suspect]
     Active Substance: TEICOPLANIN
     Route: 042
     Dates: start: 20140723, end: 20140726
  8. TARGOCID [Suspect]
     Active Substance: TEICOPLANIN
     Route: 042
     Dates: start: 20140826, end: 20140901

REACTIONS (2)
  - Dermatitis bullous [Recovered/Resolved]
  - Drug eruption [Recovered/Resolved]

NARRATIVE: CASE EVENT DATE: 20140804
